FAERS Safety Report 24813305 (Version 1)
Quarter: 2025Q1

REPORT INFORMATION
  Report Type: Spontaneous
  Country: CA (occurrence: CA)
  Receive Date: 20250107
  Receipt Date: 20250107
  Transmission Date: 20250409
  Serious: Yes (Other)
  Sender: CELLTRION
  Company Number: CA-CELLTRION INC.-2024CA033290

PATIENT

DRUGS (43)
  1. TRASTUZUMAB [Suspect]
     Active Substance: TRASTUZUMAB
     Indication: Breast cancer metastatic
     Route: 042
  2. TRASTUZUMAB [Suspect]
     Active Substance: TRASTUZUMAB
     Route: 042
  3. TRASTUZUMAB [Suspect]
     Active Substance: TRASTUZUMAB
     Route: 042
  4. TRASTUZUMAB [Suspect]
     Active Substance: TRASTUZUMAB
     Route: 042
  5. TRASTUZUMAB [Suspect]
     Active Substance: TRASTUZUMAB
     Dosage: 295 MG, 1 EVERY 3 WEEKS
     Route: 042
  6. TRASTUZUMAB [Suspect]
     Active Substance: TRASTUZUMAB
     Dosage: 328 MG, 1 EVERY 3 WEEKS
     Route: 042
  7. TRASTUZUMAB [Suspect]
     Active Substance: TRASTUZUMAB
     Dosage: 328 MG, 1 EVERY 3 WEEKS
     Route: 042
  8. TRASTUZUMAB [Suspect]
     Active Substance: TRASTUZUMAB
     Route: 042
  9. TRASTUZUMAB [Suspect]
     Active Substance: TRASTUZUMAB
     Dosage: 194 MG, 1 EVERY 3 WEEKS
     Route: 042
  10. TRASTUZUMAB [Suspect]
     Active Substance: TRASTUZUMAB
  11. TRASTUZUMAB [Suspect]
     Active Substance: TRASTUZUMAB
  12. TRASTUZUMAB [Suspect]
     Active Substance: TRASTUZUMAB
  13. TRASTUZUMAB [Suspect]
     Active Substance: TRASTUZUMAB
  14. TRASTUZUMAB [Suspect]
     Active Substance: TRASTUZUMAB
  15. TRASTUZUMAB [Suspect]
     Active Substance: TRASTUZUMAB
  16. HUMAN IMMUNOGLOBULIN G [Suspect]
     Active Substance: HUMAN IMMUNOGLOBULIN G
     Indication: Product used for unknown indication
     Route: 042
  17. KADCYLA [Suspect]
     Active Substance: ADO-TRASTUZUMAB EMTANSINE
     Indication: Breast cancer metastatic
     Dosage: 200 MG, 1 EVERY 3 WEEKS
     Route: 042
  18. KADCYLA [Suspect]
     Active Substance: ADO-TRASTUZUMAB EMTANSINE
     Dosage: 194 MG, 1 EVERY 3 WEEKS
     Route: 042
  19. KADCYLA [Suspect]
     Active Substance: ADO-TRASTUZUMAB EMTANSINE
     Dosage: 1 EVERY 3 WEEKS
     Route: 042
  20. KADCYLA [Suspect]
     Active Substance: ADO-TRASTUZUMAB EMTANSINE
     Dosage: 420 MG, 1 EVERY 3 WEEKS
     Route: 042
  21. PERJETA [Suspect]
     Active Substance: PERTUZUMAB
     Indication: Breast cancer metastatic
  22. PERJETA [Suspect]
     Active Substance: PERTUZUMAB
     Dosage: 420 MG,1 EVERY 3 WEEKS
     Route: 042
  23. PERJETA [Suspect]
     Active Substance: PERTUZUMAB
     Route: 042
  24. PERJETA [Suspect]
     Active Substance: PERTUZUMAB
     Route: 042
  25. PERJETA [Suspect]
     Active Substance: PERTUZUMAB
     Route: 042
  26. PERJETA [Suspect]
     Active Substance: PERTUZUMAB
     Route: 042
  27. PERJETA [Suspect]
     Active Substance: PERTUZUMAB
     Route: 042
  28. PERJETA [Suspect]
     Active Substance: PERTUZUMAB
     Dosage: 420 MG, 1 EVERY 3 WEEKS
     Route: 042
  29. PERJETA [Suspect]
     Active Substance: PERTUZUMAB
     Route: 042
  30. PERJETA [Suspect]
     Active Substance: PERTUZUMAB
     Route: 042
  31. PERJETA [Suspect]
     Active Substance: PERTUZUMAB
     Dosage: 840 MG, 1 EVERY 3 WEEKS
     Route: 042
  32. PERJETA [Suspect]
     Active Substance: PERTUZUMAB
     Dosage: 420 MG, 1 EVERY 3 WEEKS
     Route: 042
  33. PERJETA [Suspect]
     Active Substance: PERTUZUMAB
     Route: 042
  34. XELODA [Suspect]
     Active Substance: CAPECITABINE
     Indication: Product used for unknown indication
  35. DIPHENHYDRAMINE [Concomitant]
     Active Substance: DIPHENHYDRAMINE
  36. HEPARIN SODIUM AND DEXTROSE [Concomitant]
     Active Substance: HEPARIN SODIUM
  37. MAGNESIUM [Concomitant]
     Active Substance: MAGNESIUM
  38. PACLITAXEL [Concomitant]
     Active Substance: PACLITAXEL
  39. PACLITAXEL [Concomitant]
     Active Substance: PACLITAXEL
  40. SOLU-MEDROL [Concomitant]
     Active Substance: METHYLPREDNISOLONE SODIUM SUCCINATE
  41. TRAMADOL HYDROCHLORIDE [Concomitant]
     Active Substance: TRAMADOL HYDROCHLORIDE
  42. TRAZIMERA [Concomitant]
     Active Substance: TRASTUZUMAB-QYYP
  43. TRAMADOL HYDROCHLORIDE [Concomitant]
     Active Substance: TRAMADOL HYDROCHLORIDE

REACTIONS (50)
  - Blister [Unknown]
  - Blood creatine phosphokinase increased [Unknown]
  - Blood iron decreased [Unknown]
  - Blood magnesium decreased [Unknown]
  - Blood pressure diastolic decreased [Unknown]
  - Blood pressure systolic decreased [Unknown]
  - Blood test abnormal [Unknown]
  - Dry throat [Unknown]
  - Electric shock sensation [Unknown]
  - Faeces soft [Unknown]
  - Gingival pain [Unknown]
  - Recurrent cancer [Unknown]
  - Stress [Unknown]
  - Tumour marker increased [Unknown]
  - Skin fissures [Unknown]
  - Vulvovaginal pain [Unknown]
  - Eczema [Unknown]
  - Dysmenorrhoea [Unknown]
  - Hyperaesthesia [Unknown]
  - Injection site haemorrhage [Unknown]
  - Seasonal allergy [Unknown]
  - Sneezing [Unknown]
  - Weight increased [Unknown]
  - Breast disorder [Unknown]
  - Blood pressure decreased [Unknown]
  - Dry mouth [Unknown]
  - Dry skin [Unknown]
  - Heart rate decreased [Unknown]
  - Hepatitis [Unknown]
  - Malaise [Unknown]
  - Malignant neoplasm progression [Unknown]
  - Muscular weakness [Unknown]
  - Abdominal pain [Unknown]
  - Asthenia [Unknown]
  - Constipation [Unknown]
  - Epistaxis [Unknown]
  - Fatigue [Unknown]
  - Headache [Unknown]
  - Hypotension [Unknown]
  - Myalgia [Unknown]
  - Nasopharyngitis [Unknown]
  - Nausea [Unknown]
  - Pain [Unknown]
  - Palpitations [Unknown]
  - Paraesthesia [Unknown]
  - Pruritus [Unknown]
  - Urinary tract infection [Unknown]
  - Weight decreased [Unknown]
  - Underdose [Unknown]
  - Overdose [Unknown]
